FAERS Safety Report 18305578 (Version 1)
Quarter: 2020Q3

REPORT INFORMATION
  Report Type: Spontaneous
  Country: US (occurrence: US)
  Receive Date: 20200923
  Receipt Date: 20200923
  Transmission Date: 20201103
  Serious: No
  Sender: FDA-Public Use
  Company Number: US-TEVA-2020-US-1830090

PATIENT
  Age: 68 Year
  Sex: Female

DRUGS (3)
  1. NEFAZODONE HYDROCHLORIDE TEVA [Suspect]
     Active Substance: NEFAZODONE HYDROCHLORIDE
     Dosage: 100 MILLIGRAM DAILY;
     Route: 065
     Dates: start: 2002, end: 2020
  2. NEFAZODONE HYDROCHLORIDE TEVA [Suspect]
     Active Substance: NEFAZODONE HYDROCHLORIDE
     Dosage: 100 MILLIGRAM DAILY;
     Route: 065
     Dates: start: 20200911
  3. NEFAZODONE HYDROCHLORIDE TEVA [Suspect]
     Active Substance: NEFAZODONE HYDROCHLORIDE
     Dosage: DOSE FREQUENCY: TO SPLIT THEM IN HALF AND TAKING HALF A TABLET TWICE DAILY
     Route: 065
     Dates: start: 20200831, end: 20200911

REACTIONS (13)
  - Ear pain [Recovering/Resolving]
  - Depression [Recovering/Resolving]
  - Product dose omission issue [Unknown]
  - Fatigue [Recovering/Resolving]
  - Product availability issue [Unknown]
  - Influenza like illness [Recovering/Resolving]
  - Headache [Recovering/Resolving]
  - Nausea [Recovering/Resolving]
  - Malaise [Recovering/Resolving]
  - Agitation [Recovering/Resolving]
  - Withdrawal syndrome [Recovered/Resolved]
  - Eye pain [Recovering/Resolving]
  - Back pain [Recovering/Resolving]

NARRATIVE: CASE EVENT DATE: 2020
